FAERS Safety Report 9842505 (Version 1)
Quarter: 2014Q1

REPORT INFORMATION
  Report Type: Spontaneous
  Country: US (occurrence: US)
  Receive Date: 20140124
  Receipt Date: 20140124
  Transmission Date: 20141002
  Serious: No
  Sender: FDA-Public Use
  Company Number: US-GILEAD-2011-0044431

PATIENT
  Sex: Female

DRUGS (7)
  1. RANEXA [Suspect]
     Indication: PRODUCT USED FOR UNKNOWN INDICATION
     Dosage: UNK
  2. KLONOPIN [Concomitant]
  3. ZOLOFT [Concomitant]
  4. PLAVIX                             /01220702/ [Concomitant]
  5. VOLTAREN                           /00372301/ [Concomitant]
  6. METFORMIN [Concomitant]
  7. PROTONIX [Concomitant]

REACTIONS (1)
  - Panic attack [Unknown]
